FAERS Safety Report 23160383 (Version 3)
Quarter: 2023Q4

REPORT INFORMATION
  Report Type: Report from Study
  Country: JP (occurrence: JP)
  Receive Date: 20231108
  Receipt Date: 20231121
  Transmission Date: 20240109
  Serious: Yes (Other)
  Sender: FDA-Public Use
  Company Number: JP-MYLANLABS-2023M1082136

PATIENT
  Age: 67 Year
  Sex: Male

DRUGS (2)
  1. ADALIMUMAB [Suspect]
     Active Substance: ADALIMUMAB\ISOPROPYL ALCOHOL
     Indication: Crohn^s disease
     Dosage: 40 MILLIGRAM, Q2X
     Route: 058
     Dates: start: 20230511
  2. LOXOPROFEN [Suspect]
     Active Substance: LOXOPROFEN
     Indication: Periarthritis
     Dosage: 60 MILLIGRAM, TID
     Route: 048
     Dates: start: 20230605, end: 2023

REACTIONS (3)
  - Duodenal ulcer [Not Recovered/Not Resolved]
  - Periarthritis [Not Recovered/Not Resolved]
  - Product quality issue [None]

NARRATIVE: CASE EVENT DATE: 20230605
